FAERS Safety Report 6032153-6 (Version None)
Quarter: 2009Q1

REPORT INFORMATION
  Report Type: 
  Country: None (occurrence: None)
  Receive Date: 20090107
  Receipt Date: 20081223
  Transmission Date: 20090719
  Serious: Yes (Other)
  Sender: FDA-Public Use
  Company Number: 2008003338

PATIENT
  Sex: Male

DRUGS (1)
  1. ERLOTINIB (ERLOTINIB) (TABLET) (ERLOTINIB) [Suspect]
     Dosage: QD, ORAL
     Route: 048

REACTIONS (2)
  - SKIN ULCER [None]
  - VARICOSE ULCERATION [None]
